FAERS Safety Report 11933426 (Version 1)
Quarter: 2016Q1

REPORT INFORMATION
  Report Type: Spontaneous
  Country: US (occurrence: US)
  Receive Date: 20160121
  Receipt Date: 20160121
  Transmission Date: 20160526
  Serious: No
  Sender: FDA-Public Use
  Company Number: PHEH2016US001494

PATIENT
  Sex: Female

DRUGS (3)
  1. TRILEPTAL [Suspect]
     Active Substance: OXCARBAZEPINE
     Indication: BIPOLAR DISORDER
     Dosage: 600 MG, QD FOR YEARS (300 MG IN THE MORNING AND 300 MG AFTER DINNER)
     Route: 048
  2. TRILEPTAL [Suspect]
     Active Substance: OXCARBAZEPINE
     Dosage: 600 MG,
     Route: 048
  3. TRILEPTAL [Suspect]
     Active Substance: OXCARBAZEPINE
     Dosage: 300 MG, TID
     Route: 048

REACTIONS (6)
  - Nervous system disorder [Unknown]
  - Drug hypersensitivity [Unknown]
  - Off label use [Unknown]
  - Gait disturbance [Unknown]
  - Drug intolerance [Unknown]
  - Balance disorder [Unknown]
